FAERS Safety Report 10256201 (Version 1)
Quarter: 2014Q2

REPORT INFORMATION
  Report Type: Other
  Country: JP (occurrence: JP)
  Receive Date: 20140624
  Receipt Date: 20140624
  Transmission Date: 20141212
  Serious: Yes (Other)
  Sender: FDA-Public Use
  Company Number: JP-BRISTOL-MYERS SQUIBB COMPANY-21046834

PATIENT
  Age: 39 Year
  Sex: Female

DRUGS (5)
  1. METGLUCO [Suspect]
     Indication: INSULIN RESISTANCE
     Dosage: 750 MG,PER DAY 15-DEC-2011 -?500 MG 24-DEC-2011 - 16-SEP-2012(266 DAYS)
     Route: 048
     Dates: start: 20111124, end: 20120916
  2. CLOMID [Concomitant]
     Indication: OVULATION DISORDER
     Dosage: DOSE INCREASED 15-DEC-2011 - 23-DEC-2011 (1500 MG)?24-DEC-2011 - 16-SEP-2012 (1000 MG)
     Dates: start: 2011, end: 2011
  3. DUPHASTON [Concomitant]
     Indication: LUTEAL PHASE DEFICIENCY
     Route: 048
     Dates: start: 20111129
  4. HUMAN CHORIONIC GONADOTROPHIN [Concomitant]
     Indication: OVULATION DISORDER
     Dates: start: 20120208, end: 20120803
  5. GONAL-F [Concomitant]
     Indication: OVULATION DISORDER
     Dates: start: 20120724, end: 20120802

REACTIONS (2)
  - Foetal death [Unknown]
  - Exposure during pregnancy [Recovered/Resolved]
